FAERS Safety Report 23015151 (Version 1)
Quarter: 2023Q4

REPORT INFORMATION
  Report Type: Spontaneous
  Country: US (occurrence: None)
  Receive Date: 20231002
  Receipt Date: 20231002
  Transmission Date: 20240110
  Serious: Yes (Hospitalization)
  Sender: FDA-Public Use
  Company Number: None

PATIENT
  Sex: Female

DRUGS (6)
  1. VELETRI [Suspect]
     Active Substance: EPOPROSTENOL
     Indication: Pulmonary arterial hypertension
     Dosage: OTHER QUANTITY : 15NG/KG/MINUTE;?OTHER FREQUENCY : CONTINUOUS;?
     Route: 042
     Dates: start: 202208
  2. HEPARIN L/L FLUSH SYR [Concomitant]
  3. SODIUM CHLORIDE [Concomitant]
     Active Substance: SODIUM CHLORIDE
  4. SODIUM CHLORIDE [Concomitant]
     Active Substance: SODIUM CHLORIDE
  5. DEVICE [Concomitant]
     Active Substance: DEVICE
  6. OPSU VIT [Concomitant]

REACTIONS (1)
  - Arrhythmia [None]
